FAERS Safety Report 12072267 (Version 2)
Quarter: 2016Q1

REPORT INFORMATION
  Report Type: Report from Study
  Country: MX (occurrence: MX)
  Receive Date: 20160212
  Receipt Date: 20160226
  Transmission Date: 20160526
  Serious: Yes (Disabling)
  Sender: FDA-Public Use
  Company Number: PHHY2016MX017219

PATIENT
  Sex: Male

DRUGS (1)
  1. CO-DIOVAN [Suspect]
     Active Substance: HYDROCHLOROTHIAZIDE\VALSARTAN
     Indication: THROMBOSIS
     Dosage: 1 DF, UNK
     Route: 065

REACTIONS (3)
  - Hypoacusis [Unknown]
  - Medical device discomfort [Unknown]
  - Product use issue [Not Recovered/Not Resolved]
